FAERS Safety Report 9942618 (Version 1)
Quarter: 2014Q1

REPORT INFORMATION
  Report Type: Report from Study
  Country: US (occurrence: US)
  Receive Date: 20140303
  Receipt Date: 20140303
  Transmission Date: 20141002
  Serious: No
  Sender: FDA-Public Use
  Company Number: US-ABBVIE-13P-163-1044473-00

PATIENT
  Age: 27 Year
  Sex: Female

DRUGS (5)
  1. HUMIRA [Suspect]
     Indication: CROHN^S DISEASE
     Dates: start: 20110627
  2. LOMOTIL [Concomitant]
     Indication: CROHN^S DISEASE
     Dosage: 15 MG PER TABLET/ 8 TABLETS DAILY
  3. CELEXA [Concomitant]
     Indication: ANXIETY
     Dosage: ONCE DAILY
  4. DEXILANT [Concomitant]
     Indication: GASTROOESOPHAGEAL REFLUX DISEASE
     Dosage: DAILY
  5. WELCHOL [Concomitant]
     Indication: BILE ACID MALABSORPTION
     Dosage: 1-2 DAILY

REACTIONS (2)
  - Injection site urticaria [Not Recovered/Not Resolved]
  - Injection site pruritus [Not Recovered/Not Resolved]
